FAERS Safety Report 18180871 (Version 1)
Quarter: 2020Q3

REPORT INFORMATION
  Report Type: Spontaneous
  Country: GB (occurrence: GB)
  Receive Date: 20200821
  Receipt Date: 20200821
  Transmission Date: 20201103
  Serious: Yes (Other)
  Sender: FDA-Public Use
  Company Number: GB-ACCORD-196555

PATIENT
  Age: 47 Year
  Sex: Female
  Weight: 82.55 kg

DRUGS (2)
  1. HYDROXYCHLOROQUINE [Suspect]
     Active Substance: HYDROXYCHLOROQUINE
     Indication: SYSTEMIC LUPUS ERYTHEMATOSUS
  2. CELESTIAL SLEEPYTIME [Interacting]
     Active Substance: HERBALS
     Indication: SLEEP DISORDER
     Dosage: TEA SACHET
     Route: 048
     Dates: start: 20200727, end: 20200728

REACTIONS (8)
  - Hyperhidrosis [Unknown]
  - Herbal interaction [Unknown]
  - Musculoskeletal pain [Unknown]
  - Somnolence [Unknown]
  - Arthralgia [Recovering/Resolving]
  - Headache [Recovering/Resolving]
  - Seizure [Recovering/Resolving]
  - Disorientation [Unknown]

NARRATIVE: CASE EVENT DATE: 20200727
